FAERS Safety Report 4368222-6 (Version None)
Quarter: 2004Q2

REPORT INFORMATION
  Report Type: 
  Country: None (occurrence: None)
  Receive Date: 20040527
  Receipt Date: 20040130
  Transmission Date: 20050107
  Serious: Yes (Death, Hospitalization)
  Sender: FDA-Public Use
  Company Number: F01200400183

PATIENT
  Age: 54 Year
  Sex: Female

DRUGS (5)
  1. OXALIPLATIN - SOLUTION - 100 MG/M2 [Suspect]
     Indication: BILE DUCT CANCER
     Dosage: 100 MG/M2 OVER 2  HOURS IV INFUSION ON DAY 2, Q2W  INTRAVENOUS NOS
     Route: 042
     Dates: start: 20031204, end: 20031204
  2. GEMCITABINE - SOLUTION - 1000 MG/M2 [Suspect]
     Dosage: 1000 MG/M2 OVER 100 MINUTES IV INFUSION OD DAY 1, Q2W  INTRAVENOUS NOS
     Route: 042
     Dates: start: 20031203, end: 20030203
  3. MORPHINE [Concomitant]
  4. INSULATARD NPH HUMAN [Concomitant]
  5. OMEPRAZOLE [Concomitant]

REACTIONS (9)
  - ANAEMIA [None]
  - CATHETER RELATED INFECTION [None]
  - ENTEROCOCCAL INFECTION [None]
  - GENERAL PHYSICAL HEALTH DETERIORATION [None]
  - KLEBSIELLA INFECTION [None]
  - LEUKOPENIA [None]
  - NEUTROPENIA [None]
  - PROTEUS INFECTION [None]
  - STAPHYLOCOCCAL SEPSIS [None]
